FAERS Safety Report 5130999-X (Version None)
Quarter: 2006Q4

REPORT INFORMATION
  Report Type: 
  Country: None (occurrence: None)
  Receive Date: 20061019
  Receipt Date: 20061012
  Transmission Date: 20070319
  Serious: Yes (Hospitalization)
  Sender: FDA-Public Use
  Company Number: US-MERCK-0610USA09718

PATIENT
  Age: 20 Year
  Sex: Male
  Weight: 79 kg

DRUGS (2)
  1. SINGULAIR [Suspect]
     Indication: RHINITIS ALLERGIC
     Route: 048
     Dates: start: 20030101
  2. ALBUTEROL [Concomitant]
     Route: 055

REACTIONS (1)
  - STAPHYLOCOCCAL INFECTION [None]
